FAERS Safety Report 4742638-8 (Version None)
Quarter: 2005Q3

REPORT INFORMATION
  Report Type: 
  Country: None (occurrence: None)
  Receive Date: 20050808
  Receipt Date: 20050726
  Transmission Date: 20060218
  Serious: Yes (Hospitalization, Other)
  Sender: FDA-Public Use
  Company Number: USA0507103771

PATIENT
  Age: 68 Year
  Sex: Male
  Weight: 80 kg

DRUGS (2)
  1. HUMULIN N [Suspect]
     Dosage: 50 U/2 DAY
     Dates: end: 20050301
  2. HUMULIN 70/30 [Suspect]
     Dosage: 45 U DAY
     Dates: start: 20050301

REACTIONS (4)
  - ARTHROPATHY [None]
  - BLOOD GLUCOSE INCREASED [None]
  - MYOCARDIAL INFARCTION [None]
  - REFUSAL OF TREATMENT BY PATIENT [None]
